FAERS Safety Report 24412234 (Version 1)
Quarter: 2024Q4

REPORT INFORMATION
  Report Type: Spontaneous
  Country: US (occurrence: US)
  Receive Date: 20241008
  Receipt Date: 20241008
  Transmission Date: 20250114
  Serious: Yes (Hospitalization)
  Sender: STERISCIENCE PTE
  Company Number: US-STERISCIENCE B.V.-2024-ST-000109

PATIENT
  Age: 77 Year
  Sex: Male

DRUGS (4)
  1. OXACILLIN [Suspect]
     Active Substance: OXACILLIN SODIUM
     Indication: Staphylococcal bacteraemia
     Dosage: 2G EVERY FOUR HOURS
     Route: 042
  2. VANCOMYCIN [Concomitant]
     Active Substance: VANCOMYCIN
     Indication: Evidence based treatment
     Dosage: 15MG/KG EVERY 24 HOURS
     Route: 042
  3. CEFAZOLIN [Concomitant]
     Active Substance: CEFAZOLIN
     Indication: Staphylococcal bacteraemia
     Dosage: 2G EVERY 8HOUR
     Route: 065
  4. GENTAMICIN [Concomitant]
     Active Substance: GENTAMICIN
     Indication: Staphylococcal bacteraemia
     Dosage: 1MG/KG EVERY 12HOUR
     Route: 065

REACTIONS (1)
  - Drug resistance [Unknown]
